FAERS Safety Report 11046991 (Version 1)
Quarter: 2015Q2

REPORT INFORMATION
  Report Type: Spontaneous
  Country: FR (occurrence: FR)
  Receive Date: 20150420
  Receipt Date: 20150420
  Transmission Date: 20150821
  Serious: Yes (Hospitalization)
  Sender: FDA-Public Use
  Company Number: FR-JNJFOC-20150404921

PATIENT
  Age: 90 Year
  Sex: Female

DRUGS (5)
  1. KARDEGIC [Concomitant]
     Active Substance: ASPIRIN LYSINE
     Route: 065
  2. TRANSIPEG [Concomitant]
     Active Substance: POLYETHYLENE GLYCOL 3350
     Route: 065
  3. RISPERDAL [Suspect]
     Active Substance: RISPERIDONE
     Indication: PRODUCT USED FOR UNKNOWN INDICATION
     Route: 048
     Dates: end: 20150227
  4. LOVENOX [Concomitant]
     Active Substance: ENOXAPARIN SODIUM
     Route: 065
  5. SPECIAFOLDINE [Concomitant]
     Active Substance: FOLIC ACID
     Route: 065

REACTIONS (13)
  - Hypothermia [Unknown]
  - Diverticulum oesophageal [Unknown]
  - Gastrointestinal disorder [Recovering/Resolving]
  - Aggression [Unknown]
  - Disorientation [Unknown]
  - Coma [Unknown]
  - Gastrointestinal ulcer [Unknown]
  - Hallucinations, mixed [Unknown]
  - Hypertonia [Unknown]
  - Subileus [Unknown]
  - Anaemia [Unknown]
  - Agitation [Unknown]
  - Hypotension [Unknown]

NARRATIVE: CASE EVENT DATE: 201501
